FAERS Safety Report 12700506 (Version 11)
Quarter: 2021Q4

REPORT INFORMATION
  Report Type: Spontaneous
  Country: US (occurrence: US)
  Receive Date: 20160830
  Receipt Date: 20211213
  Transmission Date: 20220303
  Serious: Yes (Hospitalization, Other)
  Sender: FDA-Public Use
  Company Number: US-SA-2016SA089920

PATIENT
  Age: 48 Year
  Sex: Male
  Weight: 61.2 kg

DRUGS (16)
  1. FABRAZYME [Suspect]
     Active Substance: AGALSIDASE BETA
     Indication: Fabry^s disease
     Dosage: 70 MG, QOW
     Route: 041
     Dates: start: 20100524, end: 20160420
  2. FABRAZYME [Suspect]
     Active Substance: AGALSIDASE BETA
     Indication: Lipidosis
     Dosage: 70 MG/KG, QOW
     Route: 041
     Dates: start: 2016
  3. FABRAZYME [Suspect]
     Active Substance: AGALSIDASE BETA
     Dosage: 70 MG, QOW
     Route: 041
  4. DIPHENHYDRAMINE [Concomitant]
     Active Substance: DIPHENHYDRAMINE
     Dosage: UNK
  5. SODIUM CHLORIDE [Concomitant]
     Active Substance: SODIUM CHLORIDE
     Dosage: UNK
  6. EPINEPHRINE [Concomitant]
     Active Substance: EPINEPHRINE
     Dosage: UNK
  7. SOLU-MEDROL [Concomitant]
     Active Substance: METHYLPREDNISOLONE SODIUM SUCCINATE
     Dosage: UNK
  8. TYLENOL [Concomitant]
     Active Substance: ACETAMINOPHEN
     Dosage: UNK
  9. STERILE WATER [Concomitant]
     Active Substance: WATER
     Dosage: UNK
     Route: 065
  10. VELPHORO [Concomitant]
     Active Substance: SUCROFERRIC OXYHYDROXIDE
     Dosage: UNK
  11. BISACODYL [Concomitant]
     Active Substance: BISACODYL
     Dosage: UNK
  12. RENAPLEX D [Concomitant]
     Dosage: UNK
  13. DELFLEX [Concomitant]
     Active Substance: CALCIUM CHLORIDE\DEXTROSE\MAGNESIUM CHLORIDE\SODIUM CHLORIDE\SODIUM LACTATE
     Dosage: UNK
  14. LORAZEPAM [Concomitant]
     Active Substance: LORAZEPAM
  15. LISINOPRIL [Concomitant]
     Active Substance: LISINOPRIL
  16. LANTHANUM CARBONATE [Concomitant]
     Active Substance: LANTHANUM CARBONATE

REACTIONS (17)
  - Confusional state [Unknown]
  - End stage renal disease [Unknown]
  - Blood pressure increased [Unknown]
  - Hypotension [Unknown]
  - Malaise [Unknown]
  - Inflammation [Unknown]
  - Ear pain [Unknown]
  - Tinnitus [Unknown]
  - Insomnia [Unknown]
  - Illness [Unknown]
  - Atrioventricular block [Unknown]
  - Asymptomatic COVID-19 [Unknown]
  - SARS-CoV-2 test positive [Unknown]
  - Hypoacusis [Not Recovered/Not Resolved]
  - Depression [Unknown]
  - Pain [Unknown]
  - Asthenia [Unknown]

NARRATIVE: CASE EVENT DATE: 20160501
